FAERS Safety Report 7417446-X (Version None)
Quarter: 2011Q2

REPORT INFORMATION
  Report Type: 
  Country: None (occurrence: None)
  Receive Date: 20110412
  Receipt Date: 20110412
  Transmission Date: 20111010
  Serious: Yes (Other)
  Sender: FDA-Public Use
  Company Number: None

PATIENT
  Age: 80 Year
  Sex: Female
  Weight: 65.7716 kg

DRUGS (7)
  1. METAMUCIL-2 [Concomitant]
  2. M.V.I. [Concomitant]
  3. PRAVASTATIN [Concomitant]
  4. RECLAST [Suspect]
     Indication: OSTEOPOROSIS
     Dosage: 5MG/100CC X1 IV
     Route: 042
     Dates: start: 20110131
  5. LITHIUM [Concomitant]
  6. VIT D [Concomitant]
  7. LISINOPRIL [Concomitant]

REACTIONS (3)
  - PAIN [None]
  - C-REACTIVE PROTEIN INCREASED [None]
  - TREMOR [None]
